FAERS Safety Report 6379264-3 (Version None)
Quarter: 2009Q3

REPORT INFORMATION
  Report Type: 
  Country: None (occurrence: None)
  Receive Date: 20090928
  Receipt Date: 20090914
  Transmission Date: 20100115
  Serious: Yes (Other)
  Sender: FDA-Public Use
  Company Number: DE-MYLANLABS-2009S1016253

PATIENT
  Age: 75 Year
  Sex: Male

DRUGS (4)
  1. DICLOFENAC [Suspect]
     Indication: BACK PAIN
     Dosage: DAILY DOSE: 50 MG MILLGRAM(S) EVERY DAYS
     Route: 048
     Dates: start: 20090731, end: 20090731
  2. ASS 300 [Concomitant]
     Indication: CORONARY ARTERY DISEASE
     Dosage: DAILY DOSE: 1 DF DOSAGE FORM EVERY DAYS
     Route: 048
     Dates: start: 20090726
  3. HYDROCHLOROTHIAZIDE [Concomitant]
     Indication: HYPERTENSION
     Route: 048
     Dates: start: 20090726
  4. ENALAPRIL MALEATE [Concomitant]
     Indication: HYPERTENSION
     Route: 048
     Dates: start: 20090726

REACTIONS (2)
  - PRURIGO [None]
  - TONGUE OEDEMA [None]
